FAERS Safety Report 8197698-1 (Version None)
Quarter: 2012Q1

REPORT INFORMATION
  Report Type: 
  Country: None (occurrence: None)
  Receive Date: 20120309
  Receipt Date: 20120227
  Transmission Date: 20120608
  Serious: Yes (Other)
  Sender: FDA-Public Use
  Company Number: CN-FRI-1000028932

PATIENT

DRUGS (1)
  1. DINOPROSTONE [Suspect]
     Dosage: 10 MG
     Route: 064
     Dates: start: 20120203, end: 20120203

REACTIONS (2)
  - NEONATAL ASPHYXIA [None]
  - FOETAL DISTRESS SYNDROME [None]
